FAERS Safety Report 14031011 (Version 1)
Quarter: 2017Q4

REPORT INFORMATION
  Report Type: Spontaneous
  Country: CH (occurrence: CH)
  Receive Date: 20171002
  Receipt Date: 20171002
  Transmission Date: 20180321
  Serious: Yes (Hospitalization, Other)
  Sender: FDA-Public Use
  Company Number: CH-TEVA-809575ISR

PATIENT
  Age: 90 Year
  Sex: Female

DRUGS (4)
  1. PASPERTIN TROPFEN [Suspect]
     Active Substance: METOCLOPRAMIDE HYDROCHLORIDE
     Route: 048
  2. CLAROPRAM 20 [Suspect]
     Active Substance: CITALOPRAM HYDROCHLORIDE
     Route: 048
     Dates: start: 20170830
  3. FENTANYL-MEPHA [Suspect]
     Active Substance: FENTANYL
     Indication: PRODUCT USED FOR UNKNOWN INDICATION
     Route: 061
  4. EFFENTORA [Suspect]
     Active Substance: FENTANYL CITRATE
     Indication: PRODUCT USED FOR UNKNOWN INDICATION
     Route: 002
     Dates: start: 20170831

REACTIONS (7)
  - Tachycardia [Recovered/Resolved]
  - Withdrawal syndrome [None]
  - Serotonin syndrome [None]
  - Depressed level of consciousness [Recovered/Resolved]
  - Myoclonus [Recovered/Resolved]
  - Hyperhidrosis [Unknown]
  - Hypertonia [Recovered/Resolved]

NARRATIVE: CASE EVENT DATE: 20170901
